FAERS Safety Report 8238062-6 (Version None)
Quarter: 2012Q1

REPORT INFORMATION
  Report Type: 
  Country: None (occurrence: None)
  Receive Date: 20120327
  Receipt Date: 20120321
  Transmission Date: 20120608
  Serious: Yes (Hospitalization)
  Sender: FDA-Public Use
  Company Number: CA-GLAXOSMITHKLINE-A0970724A

PATIENT
  Sex: Male
  Weight: 78.2 kg

DRUGS (5)
  1. ADVAIR DISKUS 100/50 [Suspect]
     Indication: CHRONIC OBSTRUCTIVE PULMONARY DISEASE
     Dosage: 1PUFF TWICE PER DAY
     Route: 055
     Dates: start: 20090101
  2. PREDNISONE TAB [Suspect]
  3. ALBUTEROL [Concomitant]
     Dosage: 2PUFF FOUR TIMES PER DAY
     Route: 055
  4. ATROVENT [Concomitant]
     Dosage: 2PUFF FOUR TIMES PER DAY
     Route: 055
  5. OXYGEN [Concomitant]

REACTIONS (5)
  - BLOOD GLUCOSE INCREASED [None]
  - DISORIENTATION [None]
  - CONFUSIONAL STATE [None]
  - OXYGEN SATURATION INCREASED [None]
  - PNEUMONIA [None]
